FAERS Safety Report 24081204 (Version 1)
Quarter: 2024Q3

REPORT INFORMATION
  Report Type: Spontaneous
  Country: US (occurrence: US)
  Receive Date: 20240711
  Receipt Date: 20240711
  Transmission Date: 20241017
  Serious: No
  Sender: KRAMER LABORATORIES
  Company Number: US-KRAMERLABS-2024-US-018679

PATIENT
  Age: 29 Year
  Sex: Female
  Weight: 46.27 kg

DRUGS (2)
  1. NIZORAL A-D [Suspect]
     Active Substance: KETOCONAZOLE
     Indication: Dandruff
     Dosage: USED 3X PERWEEK
     Route: 061
     Dates: start: 20240316, end: 20240325
  2. COSMETICS [Suspect]
     Active Substance: COSMETICS
     Dosage: USED 2X/ EVERY OTHER WASH
     Route: 061
     Dates: start: 20240316

REACTIONS (1)
  - Drug ineffective [Recovered/Resolved]

NARRATIVE: CASE EVENT DATE: 20240316
